FAERS Safety Report 8352546-1 (Version None)
Quarter: 2012Q2

REPORT INFORMATION
  Report Type: 
  Country: None (occurrence: None)
  Receive Date: 20120511
  Receipt Date: 20120427
  Transmission Date: 20120825
  Serious: Yes (Life-Threatening, Hospitalization)
  Sender: FDA-Public Use
  Company Number: DE-MYLANLABS-2012S1008665

PATIENT
  Age: 70 Year
  Sex: Male
  Weight: 75 kg

DRUGS (4)
  1. MARCUMAR [Suspect]
     Indication: ATRIAL FLUTTER
     Dosage: NACH INR
     Route: 048
     Dates: start: 20120101, end: 20120419
  2. VERAPAMIL [Suspect]
     Indication: ATRIAL FLUTTER
     Dosage: 120MG  1-1-1, ERHOHT VON 1-0-1 AM 01.04.12
     Route: 048
     Dates: start: 20120101, end: 20120331
  3. SIMVASTATIN [Suspect]
     Indication: ARTERIOSCLEROSIS CORONARY ARTERY
     Dosage: 80 MG 0-0-1
     Route: 048
     Dates: start: 20090101, end: 20120419
  4. VERAPAMIL [Suspect]
     Route: 048
     Dates: start: 20120401, end: 20120419

REACTIONS (3)
  - RHABDOMYOLYSIS [None]
  - SKIN DISORDER [None]
  - TRANSAMINASES INCREASED [None]
